FAERS Safety Report 21932256 (Version 2)
Quarter: 2023Q1

REPORT INFORMATION
  Report Type: Spontaneous
  Country: US (occurrence: US)
  Receive Date: 20230131
  Receipt Date: 20230215
  Transmission Date: 20230418
  Serious: No
  Sender: FDA-Public Use
  Company Number: US-PFIZER INC-PV202300017888

PATIENT
  Age: 22 Year
  Sex: Female

DRUGS (1)
  1. XELJANZ XR [Suspect]
     Active Substance: TOFACITINIB CITRATE
     Dosage: UNK

REACTIONS (6)
  - Chronic fatigue syndrome [Unknown]
  - Sleep disorder due to general medical condition, hypersomnia type [Unknown]
  - Nausea [Unknown]
  - Vomiting [Unknown]
  - Renal function test abnormal [Unknown]
  - Hepatic enzyme increased [Unknown]
